FAERS Safety Report 9201321 (Version 1)
Quarter: 2013Q2

REPORT INFORMATION
  Report Type: Spontaneous
  Country: ZA (occurrence: ZA)
  Receive Date: 20130401
  Receipt Date: 20130401
  Transmission Date: 20140414
  Serious: Yes (Other)
  Sender: FDA-Public Use
  Company Number: ZA-COVIDIEN/TYCO HEALTHCARE/MALLINCKRODT-T201301531

PATIENT
  Sex: Female

DRUGS (1)
  1. EXALGO EXTENDED RELEASE [Suspect]
     Indication: PAIN
     Dosage: 4 MG
     Route: 048
     Dates: start: 20130315

REACTIONS (5)
  - Cardiac failure [Unknown]
  - Cardiac enzymes increased [Unknown]
  - Electrolyte imbalance [Unknown]
  - Blood pressure decreased [Unknown]
  - Dizziness [Unknown]
